FAERS Safety Report 25454164 (Version 1)
Quarter: 2025Q2

REPORT INFORMATION
  Report Type: Report from Study
  Country: ZA (occurrence: ZA)
  Receive Date: 20250619
  Receipt Date: 20250619
  Transmission Date: 20250716
  Serious: Yes (Other)
  Sender: ROCHE
  Company Number: ZA-ROCHE-10000311580

PATIENT
  Age: 36 Year
  Sex: Male
  Weight: 27 kg

DRUGS (1)
  1. OCREVUS [Suspect]
     Active Substance: OCRELIZUMAB
     Indication: Primary progressive multiple sclerosis
     Dosage: THEREAFTER 600MG EVERY AFTER 6 MONTHS
     Route: 042
     Dates: start: 20230111

REACTIONS (8)
  - Weight decreased [Unknown]
  - Neurogenic bladder [Unknown]
  - Blood cholesterol increased [Unknown]
  - Low density lipoprotein increased [Unknown]
  - Magnetic resonance imaging abnormal [Unknown]
  - Cerebral atrophy [Unknown]
  - Cerebral disorder [Unknown]
  - Magnetic resonance imaging head abnormal [Unknown]
